FAERS Safety Report 6210327-9 (Version None)
Quarter: 2009Q2

REPORT INFORMATION
  Report Type: 
  Country: None (occurrence: None)
  Receive Date: 20090529
  Receipt Date: 20090529
  Transmission Date: 20091009
  Serious: No
  Sender: FDA-Public Use
  Company Number: None

PATIENT
  Sex: Male

DRUGS (1)
  1. ULTRAM ER [Suspect]
     Dosage: 200MG 1QAM PO EVERY DAY
     Route: 048
     Dates: start: 20090423, end: 20090522

REACTIONS (2)
  - AGGRESSION [None]
  - DRUG WITHDRAWAL SYNDROME [None]
